FAERS Safety Report 9638320 (Version 2)
Quarter: 2013Q4

REPORT INFORMATION
  Report Type: Spontaneous
  Country: US (occurrence: US)
  Receive Date: 20131022
  Receipt Date: 20131122
  Transmission Date: 20140711
  Serious: Yes (Hospitalization)
  Sender: FDA-Public Use
  Company Number: US-GLAXOSMITHKLINE-A1046118A

PATIENT
  Age: 67 Year
  Sex: Male

DRUGS (10)
  1. ARIXTRA [Suspect]
     Indication: THROMBOSIS PROPHYLAXIS
     Dosage: 10MG PER DAY
     Route: 058
     Dates: start: 201210
  2. ALPRAZOLAM [Concomitant]
  3. COQ10 [Concomitant]
  4. GLUCOSAMINE [Concomitant]
  5. LEXAPRO [Concomitant]
  6. LISINOPRIL [Concomitant]
  7. SIMVASTATIN [Concomitant]
  8. TAMSULOSIN [Concomitant]
  9. ZOLPIDEM [Concomitant]
  10. CYCLOBENZAPRINE [Concomitant]

REACTIONS (4)
  - Pneumonia [Unknown]
  - Respiratory failure [Unknown]
  - Atrial fibrillation [Unknown]
  - Off label use [Unknown]
